FAERS Safety Report 4899784-8 (Version None)
Quarter: 2006Q1

REPORT INFORMATION
  Report Type: 
  Country: None (occurrence: None)
  Receive Date: 20060118
  Receipt Date: 20050506
  Transmission Date: 20060701
  Serious: No
  Sender: FDA-Public Use
  Company Number: 2005000883

PATIENT
  Age: 77 Year
  Sex: Female
  Weight: 47.1741 kg

DRUGS (3)
  1. TARCEVA [Suspect]
     Indication: PANCREATIC CARCINOMA
     Dosage: 150 MG (QD), ORAL
     Route: 048
  2. PAIN MEDICATION [Concomitant]
  3. ANTI-NAUSEA MEDICATION [Concomitant]

REACTIONS (2)
  - JOINT SWELLING [None]
  - PRURITUS [None]
